FAERS Safety Report 4285744-7 (Version None)
Quarter: 2004Q1

REPORT INFORMATION
  Report Type: 
  Country: None (occurrence: None)
  Receive Date: 20040203
  Receipt Date: 20040121
  Transmission Date: 20041129
  Serious: Yes (Hospitalization)
  Sender: FDA-Public Use
  Company Number: 2004UW01117

PATIENT
  Age: 70 Year
  Sex: Female
  Weight: 55.7924 kg

DRUGS (3)
  1. CRESTOR [Suspect]
     Indication: HYPERCHOLESTEROLAEMIA
     Dosage: 10 MG QD PO
     Route: 048
     Dates: start: 20040107, end: 20040110
  2. ZANTAC [Concomitant]
  3. ASPIRIN [Concomitant]

REACTIONS (3)
  - EPISTAXIS [None]
  - MOUTH HAEMORRHAGE [None]
  - MYOCARDIAL INFARCTION [None]
